FAERS Safety Report 7792935-7 (Version None)
Quarter: 2011Q4

REPORT INFORMATION
  Report Type: 
  Country: None (occurrence: None)
  Receive Date: 20111003
  Receipt Date: 20110922
  Transmission Date: 20120403
  Serious: Yes (Other)
  Sender: FDA-Public Use
  Company Number: PHHY2011CA84840

PATIENT

DRUGS (4)
  1. DIURETICS [Concomitant]
  2. CALCIUM CHANNEL BLOCKERS [Concomitant]
  3. ALISKIREN [Suspect]
     Dosage: 300 MG, UNK
  4. ANGIOTENSIN II [Concomitant]

REACTIONS (2)
  - BLOOD PRESSURE INCREASED [None]
  - HEART RATE INCREASED [None]
